FAERS Safety Report 9227920 (Version 2)
Quarter: 2013Q2

REPORT INFORMATION
  Report Type: Spontaneous
  Country: US (occurrence: US)
  Receive Date: 20130412
  Receipt Date: 20130419
  Transmission Date: 20140414
  Serious: Yes (Other)
  Sender: FDA-Public Use
  Company Number: US-PFIZER INC-2013115035

PATIENT
  Age: 18 Year
  Sex: Female

DRUGS (5)
  1. LYRICA [Suspect]
     Dosage: 75, 2X/DAY
     Route: 048
  2. PROZAC [Concomitant]
     Dosage: UNK
  3. LORTAB [Concomitant]
     Dosage: UNK
  4. PRILOSEC [Concomitant]
     Dosage: UNK
  5. TRAZODONE [Concomitant]
     Dosage: UNK

REACTIONS (1)
  - Pneumonia [Unknown]
